FAERS Safety Report 9394011 (Version 1)
Quarter: 2013Q3

REPORT INFORMATION
  Report Type: Spontaneous
  Country: CH (occurrence: CH)
  Receive Date: 20130710
  Receipt Date: 20130710
  Transmission Date: 20140515
  Serious: Yes (Other)
  Sender: FDA-Public Use
  Company Number: CH-UCBSA-090908

PATIENT
  Sex: Female
  Weight: 59 kg

DRUGS (3)
  1. KEPPRA [Suspect]
     Indication: EPILEPSY
     Dosage: WEEKLY INCREASES OF 250 MG
     Route: 048
     Dates: start: 20130309, end: 2013
  2. KEPPRA [Suspect]
     Indication: EPILEPSY
     Route: 048
     Dates: start: 2013, end: 201305
  3. LTG [Concomitant]
     Indication: EPILEPSY

REACTIONS (1)
  - Psoriasis [Recovered/Resolved]
